FAERS Safety Report 24376281 (Version 2)
Quarter: 2024Q4

REPORT INFORMATION
  Report Type: Report from Study
  Country: US (occurrence: US)
  Receive Date: 20240930
  Receipt Date: 20241101
  Transmission Date: 20250115
  Serious: Yes (Hospitalization)
  Sender: JOHNSON AND JOHNSON
  Company Number: US-JNJFOC-20240968178

PATIENT
  Age: 67 Year
  Sex: Female

DRUGS (2)
  1. SPRAVATO [Suspect]
     Active Substance: ESKETAMINE
     Indication: Depression
     Dosage: ^^84 MG, 4 TOTAL DOSES^^
     Dates: start: 20240820, end: 20240903
  2. SPRAVATO [Suspect]
     Active Substance: ESKETAMINE
     Dosage: ^^56 MG, 1 TOTAL DOSE^^
     Dates: start: 20240905, end: 20240905

REACTIONS (2)
  - Fall [Unknown]
  - Neck injury [Unknown]

NARRATIVE: CASE EVENT DATE: 20240101
